FAERS Safety Report 17403182 (Version 1)
Quarter: 2020Q1

REPORT INFORMATION
  Report Type: Spontaneous
  Country: DE (occurrence: DE)
  Receive Date: 20200211
  Receipt Date: 20200211
  Transmission Date: 20200409
  Serious: Yes (Other)
  Sender: FDA-Public Use
  Company Number: DE-AMGEN-DEUSP2020011811

PATIENT
  Age: 60 Year
  Sex: Male

DRUGS (10)
  1. DOCETAXEL. [Concomitant]
     Active Substance: DOCETAXEL
     Dosage: UNK
  2. FORTECORTIN [DEXAMETHASONE] [Concomitant]
     Active Substance: DEXAMETHASONE
     Dosage: 2 MILLIGRAM, BID, FROM THE THERAPY DAY FOR 7 DAYS
  3. ABIRATERONE. [Concomitant]
     Active Substance: ABIRATERONE ACETATE
     Dosage: UNK
  4. HYDROMORPHONE [Concomitant]
     Active Substance: HYDROMORPHONE
     Dosage: 4 MILLIGRAM, AS NECESSARY
  5. FUROSEMIDE. [Concomitant]
     Active Substance: FUROSEMIDE
     Dosage: 20 MILLIGRAM, BID, FROM THE THERAPY DAY FOR 2 DAYS
  6. XGEVA [Suspect]
     Active Substance: DENOSUMAB
     Indication: PROSTATE CANCER METASTATIC
     Dosage: 120 MILLIGRAM, Q4WK
     Route: 058
     Dates: start: 201901
  7. CABAZITAXEL [Concomitant]
     Active Substance: CABAZITAXEL
     Dosage: UNK
  8. PREDNISOLONE. [Concomitant]
     Active Substance: PREDNISOLONE
     Dosage: 5 MILLIGRAM, QD
  9. NOVALGIN (METAMIZOLE SODIUM) [Concomitant]
     Active Substance: METAMIZOLE SODIUM
     Dosage: 500 MILLIGRAM, AS NECESSARY
  10. TRENANTONE [Concomitant]
     Active Substance: LEUPROLIDE ACETATE
     Dosage: UNK, Q3MO

REACTIONS (4)
  - Troponin T increased [Unknown]
  - N-terminal prohormone brain natriuretic peptide increased [Unknown]
  - Hyperparathyroidism secondary [Not Recovered/Not Resolved]
  - Hypocalcaemia [Unknown]

NARRATIVE: CASE EVENT DATE: 202001
